FAERS Safety Report 5629949-9 (Version None)
Quarter: 2008Q1

REPORT INFORMATION
  Report Type: 
  Country: None (occurrence: None)
  Receive Date: 20080213
  Receipt Date: 20080205
  Transmission Date: 20080703
  Serious: Yes (Other)
  Sender: FDA-Public Use
  Company Number: 2008MP000027

PATIENT
  Age: 72 Year
  Sex: Female

DRUGS (3)
  1. PILOCARPINE HYDROCHLORIDE [Suspect]
     Indication: DRY MOUTH
     Dosage: 5 MG; QD; PO
     Route: 048
     Dates: start: 20070901
  2. ACTONEL [Concomitant]
  3. ASPIRIN [Concomitant]

REACTIONS (3)
  - CARDIAC FIBRILLATION [None]
  - GASTRIC DISORDER [None]
  - MALAISE [None]
